FAERS Safety Report 5520353-0 (Version None)
Quarter: 2007Q4

REPORT INFORMATION
  Report Type: 
  Country: None (occurrence: None)
  Receive Date: 20071119
  Receipt Date: 20071112
  Transmission Date: 20080405
  Serious: Yes (Other)
  Sender: FDA-Public Use
  Company Number: PHEH2007US14779

PATIENT

DRUGS (1)
  1. RECLAST [Suspect]
     Dosage: YEARLY
     Route: 042

REACTIONS (1)
  - TEMPORAL ARTERITIS [None]
